FAERS Safety Report 18217979 (Version 2)
Quarter: 2020Q4

REPORT INFORMATION
  Report Type: Spontaneous
  Country: DE (occurrence: DE)
  Receive Date: 20200901
  Receipt Date: 20201102
  Transmission Date: 20210113
  Serious: Yes (Death)
  Sender: FDA-Public Use
  Company Number: DE-JNJFOC-20200830688

PATIENT
  Age: 23 Year
  Sex: Female
  Weight: 70 kg

DRUGS (1)
  1. TREMFYA [Suspect]
     Active Substance: GUSELKUMAB
     Indication: PSORIASIS
     Route: 065
     Dates: start: 20200305

REACTIONS (1)
  - Death [Fatal]
